FAERS Safety Report 4859889-4 (Version None)
Quarter: 2005Q4

REPORT INFORMATION
  Report Type: 
  Country: None (occurrence: None)
  Receive Date: 20051215
  Receipt Date: 20051206
  Transmission Date: 20060501
  Serious: Yes (Death, Hospitalization)
  Sender: FDA-Public Use
  Company Number: 2005-BP-21250RO

PATIENT
  Age: 71 Year
  Sex: Female

DRUGS (1)
  1. METHOTREXATE [Suspect]
     Indication: RHEUMATOID ARTHRITIS
     Dosage: 100 MG IN 8 DAYS (2 X 50 MG) (NR), PO
     Route: 048

REACTIONS (7)
  - INCORRECT DOSE ADMINISTERED [None]
  - MEDICATION ERROR [None]
  - MULTI-ORGAN FAILURE [None]
  - OVERDOSE [None]
  - PANCYTOPENIA [None]
  - PNEUMONIA [None]
  - SEPSIS [None]
